FAERS Safety Report 12925693 (Version 2)
Quarter: 2017Q1

REPORT INFORMATION
  Report Type: Spontaneous
  Country: US (occurrence: US)
  Receive Date: 20161108
  Receipt Date: 20170209
  Transmission Date: 20170428
  Serious: No
  Sender: FDA-Public Use
  Company Number: US-SA-2016SA194884

PATIENT
  Age: 43 Year
  Sex: Male
  Weight: 90.26 kg

DRUGS (21)
  1. GEODON [Concomitant]
     Active Substance: ZIPRASIDONE HYDROCHLORIDE\ZIPRASIDONE MESYLATE
  2. GLUCAGON. [Concomitant]
     Active Substance: GLUCAGON
  3. LANTUS [Concomitant]
     Active Substance: INSULIN GLARGINE
  4. METOPROLOL TARTRATE. [Concomitant]
     Active Substance: METOPROLOL TARTRATE
  5. NITROSTAT [Concomitant]
     Active Substance: NITROGLYCERIN
     Route: 058
  6. PRALUENT [Suspect]
     Active Substance: ALIROCUMAB
     Indication: HYPERLIPIDAEMIA
     Route: 058
     Dates: start: 20161022, end: 20161022
  7. HUMULIN R [Concomitant]
     Active Substance: INSULIN HUMAN
  8. A-HYDROCORT [Concomitant]
     Active Substance: HYDROCORTISONE SODIUM SUCCINATE
  9. ALIROCUMAB PREFILLED PEN [Concomitant]
     Active Substance: ALIROCUMAB
     Indication: HYPERLIPIDAEMIA
  10. HUMALOG [Concomitant]
     Active Substance: INSULIN LISPRO
  11. CLOPIDOGREL [Concomitant]
     Active Substance: CLOPIDOGREL BISULFATE
  12. LORAZEPAM. [Concomitant]
     Active Substance: LORAZEPAM
  13. METOCLOPRAMIDE. [Concomitant]
     Active Substance: METOCLOPRAMIDE
  14. PANTOPRAZOLE [Concomitant]
     Active Substance: PANTOPRAZOLE SODIUM
  15. FAMOTIDINE. [Concomitant]
     Active Substance: FAMOTIDINE
  16. HUMULIN N [Concomitant]
     Active Substance: INSULIN HUMAN
  17. LORAZEPAM. [Concomitant]
     Active Substance: LORAZEPAM
  18. RANITIDINE. [Concomitant]
     Active Substance: RANITIDINE
  19. SYNTHROID [Concomitant]
     Active Substance: LEVOTHYROXINE SODIUM
  20. PRALUENT [Suspect]
     Active Substance: ALIROCUMAB
     Indication: LOW DENSITY LIPOPROTEIN INCREASED
     Route: 058
     Dates: start: 20161022, end: 20161022
  21. MOMETASONE [Concomitant]
     Active Substance: MOMETASONE

REACTIONS (8)
  - Hyperhidrosis [Not Recovered/Not Resolved]
  - Nervousness [Recovered/Resolved]
  - Skin burning sensation [Recovered/Resolved]
  - Paraesthesia [Recovered/Resolved]
  - Asthenia [Recovered/Resolved]
  - Rash [Unknown]
  - Chest discomfort [Recovered/Resolved]
  - Myalgia [Recovered/Resolved]

NARRATIVE: CASE EVENT DATE: 2016
